FAERS Safety Report 9505886 (Version 1)
Quarter: 2013Q1

REPORT INFORMATION
  Report Type: Spontaneous
  Country: US (occurrence: None)
  Receive Date: 20130219
  Receipt Date: 20130219
  Transmission Date: 20140127
  Serious: Yes (Hospitalization)
  Sender: FDA-Public Use
  Company Number: 1207USA010698

PATIENT
  Sex: Male

DRUGS (9)
  1. ZOCOR (SIMVASTATIN) [Suspect]
     Route: 048
  2. PEGASYS [Suspect]
     Route: 058
  3. TELAPREVIR (TELAPREVIR) [Suspect]
     Route: 048
  4. COPEGUS [Suspect]
     Route: 048
  5. METOPROLOL (METOPROLOL) [Concomitant]
  6. OMEPRAZOLE (OMEPRAZOLE) [Concomitant]
  7. ASPIRIN (ASPIRIN) [Concomitant]
  8. LISINOPRIL (LISINOPRIL) [Concomitant]
  9. ZOCOR (SIMVASTATIN) [Concomitant]

REACTIONS (2)
  - Muscular weakness [None]
  - Rhabdomyolysis [None]
